FAERS Safety Report 24278947 (Version 10)
Quarter: 2025Q2

REPORT INFORMATION
  Report Type: Spontaneous
  Country: US (occurrence: US)
  Receive Date: 20240903
  Receipt Date: 20250627
  Transmission Date: 20250716
  Serious: No
  Sender: PFIZER
  Company Number: US-PFIZER INC-202400247057

PATIENT
  Age: 59 Year
  Sex: Female

DRUGS (4)
  1. TUKYSA [Suspect]
     Active Substance: TUCATINIB
     Indication: Breast cancer female
     Dosage: 300 MG, 2X/DAY, 150 MG TWO TABLETS BY MOUTH TWICE A DAY (AT TIME OF OCCURRENCE)
     Route: 048
     Dates: start: 20230918
  2. TUKYSA [Suspect]
     Active Substance: TUCATINIB
     Dosage: 150 MG, 1 TABLET BY MOUTH TWICE DAILY
     Route: 048
     Dates: end: 20250623
  3. HERCEPTIN [Concomitant]
     Active Substance: TRASTUZUMAB
     Dates: start: 20230918
  4. CAPECITABINE [Concomitant]
     Active Substance: CAPECITABINE
     Dates: start: 20230918

REACTIONS (5)
  - Gastrointestinal disorder [Recovered/Resolved]
  - Laboratory test abnormal [Unknown]
  - Product prescribing error [Unknown]
  - Intercepted product prescribing error [Unknown]
  - Inappropriate schedule of product administration [Unknown]
